FAERS Safety Report 9672002 (Version 1)
Quarter: 2013Q4

REPORT INFORMATION
  Report Type: Spontaneous
  Country: US (occurrence: US)
  Receive Date: 20131106
  Receipt Date: 20131106
  Transmission Date: 20140711
  Serious: Yes (Other)
  Sender: FDA-Public Use
  Company Number: US-GLAXOSMITHKLINE-A1046332A

PATIENT
  Age: 57 Year
  Sex: Female

DRUGS (2)
  1. VENTOLIN [Suspect]
     Indication: BRONCHITIS
     Dosage: 1PUFF SINGLE DOSE
     Route: 055
     Dates: start: 20131010, end: 20131010
  2. SYNTHROID [Concomitant]

REACTIONS (2)
  - Myocardial infarction [Recovered/Resolved]
  - Palpitations [Recovered/Resolved]
